FAERS Safety Report 9394837 (Version 1)
Quarter: 2013Q3

REPORT INFORMATION
  Report Type: Spontaneous
  Country: US (occurrence: US)
  Receive Date: 20130711
  Receipt Date: 20130711
  Transmission Date: 20140515
  Serious: Yes (Hospitalization)
  Sender: FDA-Public Use
  Company Number: US-BAYER-2013-084316

PATIENT
  Age: 47 Year
  Sex: Female

DRUGS (5)
  1. YAZ [Suspect]
     Indication: HOT FLUSH
  2. YASMIN [Suspect]
  3. DILAUDID [Concomitant]
     Indication: CHEST PAIN
  4. TORADOL [Concomitant]
     Indication: CHEST PAIN
  5. IMITREX [Concomitant]

REACTIONS (2)
  - Pulmonary embolism [None]
  - Deep vein thrombosis [None]
